FAERS Safety Report 9183582 (Version 1)
Quarter: 2013Q1

REPORT INFORMATION
  Report Type: Spontaneous
  Country: US (occurrence: US)
  Receive Date: 20130322
  Receipt Date: 20130322
  Transmission Date: 20140127
  Serious: Yes (Other)
  Sender: FDA-Public Use
  Company Number: US-BRISTOL-MYERS SQUIBB COMPANY-16557217

PATIENT
  Age: 83 Year
  Sex: Male
  Weight: 40.82 kg

DRUGS (1)
  1. ERBITUX SOLN FOR INF [Suspect]
     Indication: LIP AND/OR ORAL CAVITY CANCER

REACTIONS (4)
  - Malignant neoplasm progression [Unknown]
  - Oral pain [Unknown]
  - Weight decreased [Unknown]
  - Cough [Unknown]
